FAERS Safety Report 25004536 (Version 2)
Quarter: 2025Q2

REPORT INFORMATION
  Report Type: Spontaneous
  Country: JP (occurrence: JP)
  Receive Date: 20250224
  Receipt Date: 20250404
  Transmission Date: 20250717
  Serious: Yes (Death, Hospitalization, Other)
  Sender: MERCK SHARP AND DOHME
  Company Number: JP-MSD-M2024-46966

PATIENT
  Sex: Female
  Weight: 44.2 kg

DRUGS (3)
  1. KEYTRUDA [Suspect]
     Active Substance: PEMBROLIZUMAB
     Indication: Cervix carcinoma stage IV
     Dates: start: 20240426, end: 20240621
  2. CARBOPLATIN [Suspect]
     Active Substance: CARBOPLATIN
     Indication: Cervix carcinoma stage IV
     Dosage: ONCE EVERY 3 WEEKS
     Dates: start: 20240426, end: 20240621
  3. PACLITAXEL [Suspect]
     Active Substance: PACLITAXEL
     Indication: Cervix carcinoma stage IV
     Dosage: ONCE EVERY 3 WEEKS
     Dates: start: 20240426, end: 20240621

REACTIONS (7)
  - Hepatic failure [Fatal]
  - Febrile neutropenia [Recovered/Resolved]
  - Anaemia [Unknown]
  - Cholangitis sclerosing [Unknown]
  - Platelet count decreased [Unknown]
  - Peptic ulcer [Recovered/Resolved]
  - Melaena [Unknown]

NARRATIVE: CASE EVENT DATE: 20240101
